FAERS Safety Report 10191606 (Version 1)
Quarter: 2014Q2

REPORT INFORMATION
  Report Type: Spontaneous
  Country: US (occurrence: US)
  Receive Date: 20140523
  Receipt Date: 20140523
  Transmission Date: 20141212
  Serious: Yes (Other)
  Sender: FDA-Public Use
  Company Number: US-SA-2014SA064946

PATIENT
  Age: 77 Year
  Sex: Female

DRUGS (3)
  1. LANTUS SOLOSTAR [Suspect]
     Indication: TYPE 2 DIABETES MELLITUS
     Dosage: DOSE-20 U ,15 U
     Route: 065
     Dates: start: 2009
  2. SOLOSTAR [Concomitant]
     Dates: start: 2009
  3. NOVOLOG [Concomitant]

REACTIONS (2)
  - Eye operation [Unknown]
  - Eye disorder [Unknown]
